FAERS Safety Report 20200347 (Version 1)
Quarter: 2021Q4

REPORT INFORMATION
  Report Type: Spontaneous
  Country: US (occurrence: US)
  Receive Date: 20211217
  Receipt Date: 20211217
  Transmission Date: 20220303
  Serious: No
  Sender: FDA-Public Use
  Company Number: US-drreddys-LIT/USA/21/0144783

PATIENT
  Age: 69 Year
  Sex: Male

DRUGS (2)
  1. MINOCYCLINE HYDROCHLORIDE [Suspect]
     Active Substance: MINOCYCLINE HYDROCHLORIDE
     Indication: Staphylococcal bacteraemia
  2. APIXABAN [Suspect]
     Active Substance: APIXABAN
     Indication: Atrial fibrillation

REACTIONS (4)
  - Scleral discolouration [Recovering/Resolving]
  - Ecchymosis [Unknown]
  - Tooth discolouration [Recovering/Resolving]
  - Skin hyperpigmentation [Recovering/Resolving]
